FAERS Safety Report 7584787-5 (Version None)
Quarter: 2011Q2

REPORT INFORMATION
  Report Type: 
  Country: None (occurrence: None)
  Receive Date: 20110630
  Receipt Date: 20110622
  Transmission Date: 20111010
  Serious: Yes (Other)
  Sender: FDA-Public Use
  Company Number: PHHY2011US34033

PATIENT
  Age: 50 Year
  Sex: Female
  Weight: 93 kg

DRUGS (6)
  1. BOTOX [Concomitant]
     Indication: BLADDER DISORDER
     Dosage: 20 APPLICATIONS YEARLY
     Dates: start: 20100228
  2. PROZAC [Concomitant]
     Dosage: 60 MG, DAILY
     Route: 048
     Dates: start: 19940225
  3. PROVIGIL [Concomitant]
     Indication: FATIGUE
     Dosage: 100 MG, DAILY
     Route: 048
     Dates: start: 20030515
  4. GILENYA [Suspect]
     Indication: MULTIPLE SCLEROSIS
     Dosage: 0.5 MG, DAILY
     Route: 048
     Dates: start: 20110103
  5. NUVIGIL [Concomitant]
     Indication: FATIGUE
     Dosage: 250 MG, DAILY
     Route: 048
     Dates: start: 20100315, end: 20110301
  6. LIORESAL [Concomitant]
     Route: 037

REACTIONS (3)
  - BRONCHITIS [None]
  - URINARY TRACT INFECTION [None]
  - WHITE BLOOD CELL COUNT DECREASED [None]
